FAERS Safety Report 8976001 (Version 1)
Quarter: 2012Q4

REPORT INFORMATION
  Report Type: 
  Country: CH (occurrence: CH)
  Receive Date: 20121219
  Receipt Date: 20121219
  Transmission Date: 20130627
  Serious: Yes (Other)
  Sender: FDA-Public Use
  Company Number: PHHY2012CH116973

PATIENT
  Age: 42 Year
  Sex: Female
  Weight: 80 kg

DRUGS (14)
  1. OMEPRAZOL [Suspect]
     Indication: GASTRITIS
     Dosage: 40 mg, daily
     Route: 048
     Dates: start: 201110, end: 20120608
  2. AT 10 [Concomitant]
     Indication: HYPOPARATHYROIDISM
     Dosage: 26 drp
     Route: 048
     Dates: start: 2005
  3. AT 10 [Concomitant]
     Dosage: 12 to 45 drops/d
     Route: 048
     Dates: start: 201203
  4. AT 10 [Concomitant]
     Dosage: 30 UNK, UNK
     Route: 048
  5. CALCIUM ^SANDOZ^ [Concomitant]
     Dosage: 1-2 per day
  6. CALCIUM ^SANDOZ^ [Concomitant]
     Dosage: 1 DF, TID
     Route: 048
     Dates: start: 201203, end: 201207
  7. NEURONTIN [Concomitant]
     Indication: TRIGEMINAL NEURALGIA
     Dosage: 1 DF, QID
     Dates: start: 2010
  8. NEURONTIN [Concomitant]
     Dosage: 1 DF, TID
  9. ATACAND [Concomitant]
     Dosage: .5 DF, QD
     Route: 048
     Dates: start: 201109
  10. ELTROXIN [Concomitant]
     Dosage: 1 DF, QD
     Dates: start: 2005
  11. FLOX-EX [Concomitant]
     Dosage: 1 DF, QD
     Route: 048
  12. MAGNESIOCARD [Concomitant]
     Dosage: 1 DF, QD
     Route: 048
  13. TEMESTA [Concomitant]
     Dosage: 1 DF, QD
     Route: 048
  14. NOVALGIN [Concomitant]
     Dosage: 500 mg, UNK

REACTIONS (2)
  - Hypocalcaemia [Recovered/Resolved]
  - Paraesthesia [Recovering/Resolving]
